FAERS Safety Report 5076579-6 (Version None)
Quarter: 2006Q3

REPORT INFORMATION
  Report Type: 
  Country: None (occurrence: None)
  Receive Date: 20060725
  Receipt Date: 20060329
  Transmission Date: 20061208
  Serious: No
  Sender: FDA-Public Use
  Company Number: 200612014BWH

PATIENT
  Sex: Female
  Weight: 67.1324 kg

DRUGS (8)
  1. NEXAVAR [Suspect]
     Dosage: 400 MG, BID, ORAL; SEE IMAGE
     Route: 048
     Dates: start: 20060301, end: 20060426
  2. NEXAVAR [Suspect]
     Dosage: 400 MG, BID, ORAL; SEE IMAGE
     Route: 048
     Dates: start: 20060130
  3. NEXAVAR [Suspect]
     Dosage: 400 MG, BID, ORAL; SEE IMAGE
     Route: 048
     Dates: start: 20060507
  4. NEXIUM [Concomitant]
  5. ARICEPT [Concomitant]
  6. VITAMINS (NOS) [Concomitant]
  7. EFFEXOR [Concomitant]
  8. DIAZIDE [Concomitant]

REACTIONS (9)
  - ANOREXIA [None]
  - BLISTER [None]
  - ERYTHEMA [None]
  - FATIGUE [None]
  - HEADACHE [None]
  - MALAISE [None]
  - MUSCLE SPASMS [None]
  - PAIN IN EXTREMITY [None]
  - STOMATITIS [None]
